FAERS Safety Report 21329708 (Version 2)
Quarter: 2022Q4

REPORT INFORMATION
  Report Type: Report from Study
  Country: AU (occurrence: AU)
  Receive Date: 20220913
  Receipt Date: 20221026
  Transmission Date: 20230113
  Serious: Yes (Other)
  Sender: FDA-Public Use
  Company Number: AU-002147023-NVSC2022AU202496

PATIENT

DRUGS (3)
  1. RUXOLITINIB [Suspect]
     Active Substance: RUXOLITINIB
     Indication: Acute graft versus host disease
     Dosage: 5 MG, BID
     Route: 048
     Dates: start: 20220502
  2. POSACONAZOLE [Suspect]
     Active Substance: POSACONAZOLE
     Indication: Acute graft versus host disease
     Dosage: 300 MG, QD (DAILY, CAPSULE)
     Route: 048
     Dates: start: 20220113
  3. POSACONAZOLE [Suspect]
     Active Substance: POSACONAZOLE
     Indication: Antifungal prophylaxis

REACTIONS (1)
  - Thrombocytopenia [Not Recovered/Not Resolved]
